FAERS Safety Report 5106200-X (Version None)
Quarter: 2006Q3

REPORT INFORMATION
  Report Type: 
  Country: None (occurrence: None)
  Receive Date: 20060918
  Receipt Date: 20060308
  Transmission Date: 20061208
  Serious: Yes (Life-Threatening, Hospitalization)
  Sender: FDA-Public Use
  Company Number: JP-BAYER-200610351BYL

PATIENT
  Age: 65 Year
  Sex: Male

DRUGS (8)
  1. ASPIRIN [Suspect]
     Indication: MYOCARDIAL INFARCTION
     Dosage: TOTAL DAILY DOSE: 100 MG  UNIT DOSE: 100 MG
     Route: 048
     Dates: start: 20060129, end: 20060227
  2. TANATRIL [Suspect]
     Dosage: TOTAL DAILY DOSE: 5 MG  UNIT DOSE: 5 MG
     Route: 048
     Dates: start: 20060221, end: 20060227
  3. TAKEPRON [Suspect]
     Dosage: TOTAL DAILY DOSE: 30 MG  UNIT DOSE: 30 MG
     Route: 048
     Dates: start: 20060220, end: 20060227
  4. WARFARIN SODIUM [Suspect]
     Dosage: TOTAL DAILY DOSE: 2 MG  UNIT DOSE: 2 MG
     Route: 048
     Dates: start: 20060220, end: 20060227
  5. DORNER [Suspect]
     Route: 048
     Dates: start: 20060220, end: 20060227
  6. VASOLAN [Suspect]
     Route: 048
     Dates: start: 20060209, end: 20060227
  7. CEFZON [Suspect]
     Dosage: TOTAL DAILY DOSE: 300 MG  UNIT DOSE: 100 MG
     Route: 048
     Dates: start: 20060225, end: 20060227
  8. PANALDINE [Suspect]
     Dosage: TOTAL DAILY DOSE: 200 MG  UNIT DOSE: 100 MG
     Route: 048
     Dates: start: 20060130, end: 20060227

REACTIONS (5)
  - GENERALISED ERYTHEMA [None]
  - ORAL MUCOSAL ERUPTION [None]
  - PYREXIA [None]
  - SKIN EROSION [None]
  - TOXIC EPIDERMAL NECROLYSIS [None]
